FAERS Safety Report 7254322-X (Version None)
Quarter: 2011Q1

REPORT INFORMATION
  Report Type: 
  Country: None (occurrence: None)
  Receive Date: 20110129
  Receipt Date: 20100105
  Transmission Date: 20110831
  Serious: No
  Sender: FDA-Public Use
  Company Number: US-ABBOTT-09P-163-0597270-00

PATIENT
  Sex: Female
  Weight: 58.112 kg

DRUGS (4)
  1. COUMADIN [Concomitant]
     Indication: PRODUCT USED FOR UNKNOWN INDICATION
  2. HUMIRA [Suspect]
     Dates: start: 20091101
  3. HUMIRA [Suspect]
     Indication: RHEUMATOID ARTHRITIS
     Dates: start: 20090817, end: 20090830
  4. ARTHROTEC [Concomitant]
     Indication: PRODUCT USED FOR UNKNOWN INDICATION

REACTIONS (4)
  - RED BLOOD CELL SEDIMENTATION RATE INCREASED [None]
  - ARTHRALGIA [None]
  - DIARRHOEA [None]
  - ABDOMINAL PAIN [None]
